FAERS Safety Report 7068214-2 (Version None)
Quarter: 2010Q4

REPORT INFORMATION
  Report Type: 
  Country: None (occurrence: None)
  Receive Date: 20101028
  Receipt Date: 20101021
  Transmission Date: 20110411
  Serious: Yes (Hospitalization)
  Sender: FDA-Public Use
  Company Number: BE-ROCHE-730350

PATIENT
  Sex: Female
  Weight: 58 kg

DRUGS (2)
  1. AVASTIN [Suspect]
     Route: 042
     Dates: start: 20090913, end: 20100913
  2. TAXOL [Suspect]
     Route: 042
     Dates: start: 20090913, end: 20100830

REACTIONS (4)
  - CARDIOVASCULAR DISORDER [None]
  - CEREBROVASCULAR ACCIDENT [None]
  - EJECTION FRACTION DECREASED [None]
  - METASTASES TO MENINGES [None]
